FAERS Safety Report 14588584 (Version 1)
Quarter: 2018Q1

REPORT INFORMATION
  Report Type: Spontaneous
  Country: US (occurrence: US)
  Receive Date: 20180301
  Receipt Date: 20180301
  Transmission Date: 20180509
  Serious: Yes (Hospitalization)
  Sender: FDA-Public Use
  Company Number: US-GLAXOSMITHKLINE-US2018033725

PATIENT
  Age: 63 Year
  Sex: Female

DRUGS (10)
  1. METFORMIN [Concomitant]
     Active Substance: METFORMIN HYDROCHLORIDE
  2. HYDROCHLOROTHIAZIDE. [Concomitant]
     Active Substance: HYDROCHLOROTHIAZIDE
  3. INCRUSE ELLIPTA [Suspect]
     Active Substance: UMECLIDINIUM BROMIDE
     Indication: CHRONIC OBSTRUCTIVE PULMONARY DISEASE
     Dosage: 1 PUFF(S), 1D
     Route: 055
     Dates: start: 20170307
  4. AUGMENTIN [Concomitant]
     Active Substance: AMOXICILLIN\CLAVULANATE POTASSIUM
  5. PROAIR HFA [Concomitant]
     Active Substance: ALBUTEROL SULFATE
  6. LOSARTAN. [Concomitant]
     Active Substance: LOSARTAN
  7. MUCINEX DM [Concomitant]
     Active Substance: DEXTROMETHORPHAN HYDROBROMIDE\GUAIFENESIN
  8. SYMBICORT [Concomitant]
     Active Substance: BUDESONIDE\FORMOTEROL FUMARATE DIHYDRATE
  9. ASPIRIN (BABY) [Concomitant]
     Active Substance: ASPIRIN
  10. FISH OIL [Concomitant]
     Active Substance: FISH OIL

REACTIONS (7)
  - Increased bronchial secretion [Recovering/Resolving]
  - Dyspnoea [Recovering/Resolving]
  - Laryngitis [Recovering/Resolving]
  - Sneezing [Recovered/Resolved]
  - Malaise [Unknown]
  - Sinus disorder [Recovering/Resolving]
  - Bronchitis [Unknown]

NARRATIVE: CASE EVENT DATE: 20171130
